FAERS Safety Report 7472724-3 (Version None)
Quarter: 2011Q2

REPORT INFORMATION
  Report Type: 
  Country: None (occurrence: None)
  Receive Date: 20110502
  Receipt Date: 20110414
  Transmission Date: 20111010
  Serious: Yes (Hospitalization, Other)
  Sender: FDA-Public Use
  Company Number: 2011SP062590

PATIENT
  Age: 21 Year
  Sex: Female
  Weight: 48.9885 kg

DRUGS (2)
  1. NUVARING [Suspect]
     Indication: CONTRACEPTION
     Dates: start: 20080901, end: 20081214
  2. ACETYSALICYLIC ACID W/CAFFEINE/SALICYLAMIDE [Concomitant]

REACTIONS (15)
  - PELVIC PAIN [None]
  - MENSTRUATION IRREGULAR [None]
  - VAGINAL INFECTION [None]
  - PLEURITIC PAIN [None]
  - DEEP VEIN THROMBOSIS [None]
  - THROMBOPHLEBITIS [None]
  - INJURY [None]
  - ABORTION [None]
  - CHEST PAIN [None]
  - DYSPNOEA [None]
  - ANAEMIA [None]
  - SINUSITIS [None]
  - VULVOVAGINITIS [None]
  - PAIN IN EXTREMITY [None]
  - HYPERCOAGULATION [None]
